FAERS Safety Report 4618859-1 (Version None)
Quarter: 2005Q1

REPORT INFORMATION
  Report Type: 
  Country: None (occurrence: None)
  Receive Date: 20050323
  Receipt Date: 20050311
  Transmission Date: 20050727
  Serious: Yes (Other)
  Sender: FDA-Public Use
  Company Number: 2005043781

PATIENT
  Age: 48 Year
  Sex: Female
  Weight: 54.4316 kg

DRUGS (5)
  1. CELEBREX [Suspect]
     Indication: NECK PAIN
     Dosage: 200 MG (200 MG, 1 IN 1 D), ORAL
     Route: 048
     Dates: start: 20030101, end: 20040101
  2. ADVICOR [Suspect]
     Indication: BLOOD CHOLESTEROL INCREASED
     Dosage: 20/50 MILLIGRAMS (1 IN 1 D), ORAL
     Route: 048
     Dates: end: 20040101
  3. ROSUVASTATIN (ROSUVASTATIN) [Suspect]
     Indication: BLOOD CHOLESTEROL INCREASED
     Dosage: 10 MG (10 MG, 1 IN 1 D), ORAL
     Route: 048
     Dates: start: 20040101, end: 20040601
  4. SIMVASTATIN [Suspect]
     Indication: BLOOD CHOLESTEROL INCREASED
     Dosage: 20 MG (20 MG, 1 IN 1 D), ORAL
     Route: 048
     Dates: start: 20040601
  5. ZOLPIDEM TARTRATE [Concomitant]

REACTIONS (6)
  - ARTERIAL OCCLUSIVE DISEASE [None]
  - BLOOD CHOLESTEROL INCREASED [None]
  - DYSPNOEA [None]
  - INADEQUATE ANALGESIA [None]
  - MYALGIA [None]
  - PAIN IN EXTREMITY [None]
